FAERS Safety Report 14636372 (Version 1)
Quarter: 2018Q1

REPORT INFORMATION
  Report Type: Spontaneous
  Country: US (occurrence: US)
  Receive Date: 20180314
  Receipt Date: 20180314
  Transmission Date: 20180509
  Serious: Yes (Hospitalization)
  Sender: FDA-Public Use
  Company Number: US-ORPHAN EUROPE-2043704

PATIENT
  Sex: Female

DRUGS (1)
  1. CARBAGLU [Suspect]
     Active Substance: CARGLUMIC ACID
     Indication: UREA CYCLE DISORDER
     Dates: start: 20171019

REACTIONS (5)
  - Flatulence [Unknown]
  - Gastric dilatation [Unknown]
  - Eating disorder [Unknown]
  - Constipation [Unknown]
  - Abdominal pain upper [Unknown]
